FAERS Safety Report 14862358 (Version 2)
Quarter: 2018Q2

REPORT INFORMATION
  Report Type: Report from Study
  Country: None (occurrence: US)
  Receive Date: 20180508
  Receipt Date: 20180601
  Transmission Date: 20180711
  Serious: Yes (Death, Hospitalization)
  Sender: FDA-Public Use
  Company Number: US-ABBVIE-18P-163-2342885-00

PATIENT
  Sex: Female
  Weight: 54 kg

DRUGS (3)
  1. VENCLEXTA [Suspect]
     Active Substance: VENETOCLAX
     Route: 048
     Dates: start: 2018, end: 2018
  2. VENCLEXTA [Suspect]
     Active Substance: VENETOCLAX
     Route: 048
     Dates: start: 20180424, end: 20180428
  3. VENCLEXTA [Suspect]
     Active Substance: VENETOCLAX
     Indication: ACUTE MYELOID LEUKAEMIA
     Route: 048
     Dates: start: 20180417, end: 20180423

REACTIONS (8)
  - Metastatic neoplasm [Fatal]
  - Laboratory test abnormal [Unknown]
  - White blood cell count abnormal [Unknown]
  - Lung infection [Unknown]
  - Multiple organ dysfunction syndrome [Fatal]
  - Staphylococcal infection [Not Recovered/Not Resolved]
  - Intentional product use issue [Unknown]
  - Off label use [Not Recovered/Not Resolved]

NARRATIVE: CASE EVENT DATE: 2018
